FAERS Safety Report 4622176-3 (Version None)
Quarter: 2005Q1

REPORT INFORMATION
  Report Type: 
  Country: None (occurrence: None)
  Receive Date: 20050329
  Receipt Date: 20050318
  Transmission Date: 20050727
  Serious: Yes (Death, Other)
  Sender: FDA-Public Use
  Company Number: 05-163

PATIENT
  Age: 53 Year
  Sex: Male

DRUGS (1)
  1. ISOPTIN RR (VERAPAMIL/HCT) [Suspect]
     Dosage: 9.6 GM

REACTIONS (7)
  - APALLIC SYNDROME [None]
  - ATRIOVENTRICULAR BLOCK [None]
  - BRADYCARDIA [None]
  - CARDIO-RESPIRATORY ARREST [None]
  - HYPOTENSION [None]
  - POISONING [None]
  - SINUS ARREST [None]
